FAERS Safety Report 5168917-0 (Version None)
Quarter: 2006Q4

REPORT INFORMATION
  Report Type: 
  Country: None (occurrence: None)
  Receive Date: 20061211
  Receipt Date: 20061130
  Transmission Date: 20070319
  Serious: Yes (Hospitalization)
  Sender: FDA-Public Use
  Company Number: PHHO2006ES20182

PATIENT
  Age: 54 Year
  Sex: Female
  Weight: 58 kg

DRUGS (2)
  1. CGS 20267 [Suspect]
     Indication: BREAST CANCER
     Dosage: 2.5 MG, QD
     Route: 048
     Dates: start: 20040413
  2. ZOLEDRONIC ACID [Suspect]
     Dosage: 4 MG,
     Route: 042
     Dates: start: 20040413

REACTIONS (4)
  - ASTHENIA [None]
  - DISCOMFORT [None]
  - MIGRAINE [None]
  - VERTIGO [None]
